FAERS Safety Report 6848449-1 (Version None)
Quarter: 2010Q3

REPORT INFORMATION
  Report Type: 
  Country: None (occurrence: None)
  Receive Date: 20100716
  Receipt Date: 20100713
  Transmission Date: 20110219
  Serious: Yes (Hospitalization)
  Sender: FDA-Public Use
  Company Number: JP-BAYER-201023970GPV

PATIENT
  Age: 61 Year
  Sex: Male
  Weight: 66 kg

DRUGS (12)
  1. SORAFENIB [Suspect]
     Indication: RENAL CANCER METASTATIC
     Dosage: TOTAL DAILY DOSE: 400 MG  UNIT DOSE: 200 MG
     Route: 048
     Dates: start: 20100309, end: 20100316
  2. SORAFENIB [Suspect]
     Dosage: TOTAL DAILY DOSE: 800 MG  UNIT DOSE: 200 MG
     Route: 048
     Dates: start: 20100209
  3. FLUVASTATIN [Concomitant]
     Indication: HYPERLIPIDAEMIA
  4. ASPIRIN [Concomitant]
     Indication: ISCHAEMIC HEART DISEASE PROPHYLAXIS
     Dates: start: 19960101
  5. FERROUS FUMARATE [Concomitant]
     Indication: ANAEMIA
     Dates: start: 20090407
  6. HUSTAZOL [Concomitant]
     Indication: COUGH
     Dosage: TOTAL DAILY DOSE: 30 MG
     Dates: start: 20090508
  7. BORRAZA-G [Concomitant]
     Indication: HAEMORRHOIDS
     Dates: start: 20090428
  8. HIRUDOID [Concomitant]
     Indication: PALMAR-PLANTAR ERYTHRODYSAESTHESIA SYNDROME
     Dosage: 0.3%
     Route: 061
     Dates: start: 20090209
  9. ALLORINE [Concomitant]
     Indication: GOUT
     Dosage: TOTAL DAILY DOSE: 200 MG
     Route: 048
     Dates: start: 20090101
  10. GASLON [Concomitant]
     Indication: GASTRITIS PROPHYLAXIS
     Dosage: TOTAL DAILY DOSE: 4 MG
     Dates: start: 20090407
  11. THYRADIN-S [Concomitant]
     Indication: HYPOTHYROIDISM
     Route: 048
     Dates: start: 20100107
  12. BLOPRESS [Concomitant]
     Indication: HYPERTENSION
     Route: 048
     Dates: start: 20100223

REACTIONS (2)
  - PNEUMOTHORAX [None]
  - TUBERCULOSIS [None]
